FAERS Safety Report 8276399-5 (Version None)
Quarter: 2012Q2

REPORT INFORMATION
  Report Type: 
  Country: None (occurrence: None)
  Receive Date: 20120412
  Receipt Date: 20120409
  Transmission Date: 20120825
  Serious: Yes (Other)
  Sender: FDA-Public Use
  Company Number: US-JNJFOC-20120402678

PATIENT
  Age: 46 Year
  Sex: Male
  Weight: 74.84 kg

DRUGS (3)
  1. MINOXIDIL [Suspect]
     Indication: ALOPECIA
     Dosage: HALF CAPFUL
     Route: 061
  2. HYDROCODONE [Concomitant]
     Indication: BACK PAIN
     Route: 065
  3. MINOXIDIL [Suspect]
     Route: 061

REACTIONS (2)
  - SEMEN VOLUME DECREASED [None]
  - EXPIRED DRUG ADMINISTERED [None]
